FAERS Safety Report 9310287 (Version 4)
Quarter: 2013Q3

REPORT INFORMATION
  Report Type: Report from Study
  Country: IN (occurrence: IN)
  Receive Date: 20130527
  Receipt Date: 20130717
  Transmission Date: 20140515
  Serious: Yes (Hospitalization)
  Sender: FDA-Public Use
  Company Number: PHHY2013IN052265

PATIENT
  Age: 66 Year
  Sex: Female
  Weight: 62 kg

DRUGS (29)
  1. ACLASTA [Suspect]
     Indication: OSTEOPOROSIS
     Dosage: 5 MG/ 100 ML ONCE A YEAR
     Route: 042
     Dates: start: 20130329
  2. PANTOPRAZOLE [Concomitant]
     Dosage: 40 MG, UNK
     Route: 048
  3. TRAXOL T [Concomitant]
     Dosage: UNK
     Route: 048
  4. PARACIP [Concomitant]
     Dosage: UNK
     Route: 042
  5. DISPERZYME [Concomitant]
     Dosage: UNK UKN, UNK
  6. SATOLAX [Concomitant]
     Dosage: UNK UKN, UNK
  7. ZOBID [Concomitant]
     Dosage: UNK UKN, UNK
  8. LYCAZID [Concomitant]
     Dosage: UNK UKN, UNK
  9. ZIENAM [Concomitant]
     Dosage: 500 MG, UNK
  10. PLASMANATE [Concomitant]
     Dosage: UNK UKN, UNK
  11. IGANTET [Concomitant]
     Dosage: 250 MG, UNK
  12. THIOSOL [Concomitant]
     Dosage: UNK UKN, UNK
  13. TETANUS TOXOID [Concomitant]
     Dosage: UNK UKN, UNK
  14. BETADIN [Concomitant]
     Dosage: UNK UKN, UNK
  15. PANSA [Concomitant]
     Dosage: 40 UKN, UNK
  16. SUPRIDOL [Concomitant]
     Dosage: UNK UKN, UNK
  17. MEROTEC [Concomitant]
     Dosage: 1 G, UNK
  18. PALLIDAN [Concomitant]
     Dosage: 40 UKN, UNK
  19. PYROLATE [Concomitant]
     Dosage: UNK UKN, UNK
  20. MYOSTIGMIN [Concomitant]
     Dosage: UNK UKN, UNK
  21. MEXARON [Concomitant]
     Dosage: UNK UKN, UNK
  22. TROPINE [Concomitant]
     Dosage: UNK UKN, UNK
  23. LYCORED [Concomitant]
     Dosage: UNK UKN, UNK
  24. OXY [Concomitant]
     Dosage: UNK UKN, UNK
  25. PNZ [Concomitant]
     Dosage: UNK UKN, UNK
     Route: 042
  26. CORT-S [Concomitant]
     Dosage: UNK UKN, UNK
  27. PERISET [Concomitant]
     Dosage: UNK UKN, UNK
     Route: 042
  28. PARACETAMOL [Concomitant]
     Dosage: 1 DF, BID AFTER FOOD
  29. CITROMACALVIT [Concomitant]
     Dosage: 1 DF, BID AFTER FOOD FOR 3 MONTH.

REACTIONS (2)
  - Femur fracture [Recovering/Resolving]
  - Humerus fracture [Unknown]
